FAERS Safety Report 7759704-5 (Version None)
Quarter: 2011Q3

REPORT INFORMATION
  Report Type: 
  Country: None (occurrence: None)
  Receive Date: 20110919
  Receipt Date: 20110914
  Transmission Date: 20111222
  Serious: Yes (Hospitalization, Other)
  Sender: FDA-Public Use
  Company Number: BR-ABBOTT-11P-020-0845464-00

PATIENT
  Sex: Female

DRUGS (1)
  1. HUMIRA [Suspect]
     Indication: CROHN'S DISEASE
     Dates: start: 20090406, end: 20110701

REACTIONS (7)
  - INTESTINAL STENOSIS [None]
  - THROMBOSIS [None]
  - CONSTIPATION [None]
  - ABDOMINAL PAIN [None]
  - INTESTINAL OBSTRUCTION [None]
  - GASTROINTESTINAL PAIN [None]
  - POST PROCEDURAL INFECTION [None]
